FAERS Safety Report 7161945-5 (Version None)
Quarter: 2010Q4

REPORT INFORMATION
  Report Type: 
  Country: None (occurrence: None)
  Receive Date: 20101215
  Receipt Date: 20100721
  Transmission Date: 20110411
  Serious: Yes (Other)
  Sender: FDA-Public Use
  Company Number: GB-PFIZER INC-2010041052

PATIENT
  Age: 75 Year
  Sex: Male
  Weight: 92 kg

DRUGS (9)
  1. LYRICA [Suspect]
     Indication: TRIGEMINAL NEURALGIA
     Dosage: 75 MG, 2X/DAY
     Dates: start: 20080127
  2. LYRICA [Suspect]
     Dosage: 75 MG, 3X/DAY
     Dates: start: 20081203
  3. LYRICA [Suspect]
     Dosage: 100 MG, 2X/DAY
     Dates: start: 20090617
  4. LYRICA [Suspect]
     Dosage: 250 MG, 2X/DAY
     Dates: start: 20090714
  5. LYRICA [Suspect]
     Dosage: 400 MG, 2X/DAY
     Dates: start: 20091210
  6. LYRICA [Suspect]
     Dosage: 600 MG, 2X/DAY
     Dates: start: 20100129, end: 20100201
  7. CO-CODAMOL [Concomitant]
     Indication: OSTEOARTHRITIS
     Dosage: 30/500 (NO UNITS PROVIDED) FOUR TIMES DAILY
     Route: 048
     Dates: start: 20080715
  8. LANSOPRAZOLE [Concomitant]
     Indication: DYSPEPSIA
     Dosage: 30 MG, UNK
     Route: 048
     Dates: start: 20040402
  9. NARATRIPTAN [Concomitant]
     Indication: MIGRAINE
     Dosage: 2.5 MG, AS NEEDED
     Route: 048
     Dates: start: 20030124

REACTIONS (12)
  - ABDOMINAL DISTENSION [None]
  - ABDOMINAL PAIN [None]
  - ABDOMINAL PAIN UPPER [None]
  - CHEST PAIN [None]
  - DIZZINESS [None]
  - DRUG INEFFECTIVE [None]
  - GASTROINTESTINAL DISORDER [None]
  - GASTROINTESTINAL HYPOMOTILITY [None]
  - INCORRECT DOSE ADMINISTERED [None]
  - URINE FLOW DECREASED [None]
  - VISUAL ACUITY REDUCED [None]
  - WEIGHT INCREASED [None]
